FAERS Safety Report 5445674-1 (Version None)
Quarter: 2007Q3

REPORT INFORMATION
  Report Type: 
  Country: None (occurrence: None)
  Receive Date: 20070906
  Receipt Date: 20070906
  Transmission Date: 20080115
  Serious: Yes (Disabling, Other)
  Sender: FDA-Public Use
  Company Number: AU-GENENTECH-245261

PATIENT

DRUGS (2)
  1. ACTIVASE [Suspect]
     Indication: ARTERIAL THROMBOSIS
     Dosage: 3 MG/KG/H, 6 HOURS PER DAY
     Route: 042
  2. HEPARIN [Suspect]
     Indication: ARTERIAL THROMBOSIS
     Dosage: 10 U/KG/H, UNK

REACTIONS (2)
  - AMPUTATION [None]
  - DRUG INEFFECTIVE [None]
